FAERS Safety Report 24294724 (Version 2)
Quarter: 2024Q4

REPORT INFORMATION
  Report Type: Report from Study
  Country: CA (occurrence: CA)
  Receive Date: 20240906
  Receipt Date: 20241022
  Transmission Date: 20250115
  Serious: Yes (Death, Other)
  Sender: HLS THERAPEUTICS
  Company Number: CA-HLS-202402155

PATIENT
  Age: 77 Year
  Sex: Female

DRUGS (3)
  1. CLOZARIL [Suspect]
     Active Substance: CLOZAPINE
     Indication: Parkinson^s disease psychosis
     Route: 048
     Dates: start: 20170222, end: 20240725
  2. CLOZARIL [Suspect]
     Active Substance: CLOZAPINE
     Indication: Parkinson^s disease psychosis
     Dosage: 100MG AT BEDTIME
     Route: 048
     Dates: start: 20170303
  3. CARBIDOPA\LEVODOPA [Concomitant]
     Active Substance: CARBIDOPA\LEVODOPA
     Indication: Parkinson^s disease
     Dosage: 1 TABLET AT 8 AM AND 4PM?0.75 TABLETS THREE TIMES A DAY
     Route: 048
     Dates: start: 20070615, end: 202407

REACTIONS (2)
  - Off label use [Unknown]
  - Parkinson^s disease [Fatal]
